FAERS Safety Report 15075175 (Version 1)
Quarter: 2018Q2

REPORT INFORMATION
  Report Type: Spontaneous
  Country: US (occurrence: US)
  Receive Date: 20180627
  Receipt Date: 20180627
  Transmission Date: 20180711
  Serious: Yes (Other)
  Sender: FDA-Public Use
  Company Number: US-SAOL THERAPEUTICS-2017SAO03449

PATIENT
  Age: 58 Year
  Sex: Male
  Weight: 95.69 kg

DRUGS (7)
  1. BACLOFEN. [Suspect]
     Active Substance: BACLOFEN
     Indication: SPINAL PAIN
     Dosage: 8.75 ?G, \DAY
     Route: 037
     Dates: end: 20171113
  2. XARELTO [Concomitant]
     Active Substance: RIVAROXABAN
  3. METFORMIN [Concomitant]
     Active Substance: METFORMIN HYDROCHLORIDE
  4. BACLOFEN. [Suspect]
     Active Substance: BACLOFEN
     Indication: POST LAMINECTOMY SYNDROME
     Dosage: 50 ?G, \DAY
     Route: 037
     Dates: start: 2003
  5. TIZANIDINE. [Concomitant]
     Active Substance: TIZANIDINE
  6. BUPIVACAINE. [Suspect]
     Active Substance: BUPIVACAINE
     Dosage: 1.125 MG, \DAY
     Route: 037
  7. DILAUDID [Suspect]
     Active Substance: HYDROMORPHONE HYDROCHLORIDE
     Dosage: 2 MG, \DAY
     Route: 037

REACTIONS (4)
  - Drug withdrawal syndrome [Unknown]
  - Back pain [Unknown]
  - Therapy non-responder [Recovering/Resolving]
  - Complication associated with device [Recovered/Resolved]

NARRATIVE: CASE EVENT DATE: 20171026
